FAERS Safety Report 8139993 (Version 4)
Quarter: 2013Q3

REPORT INFORMATION
  Report Type: Report from Study
  Country: IT (occurrence: IT)
  Receive Date: 20110916
  Receipt Date: 20130717
  Transmission Date: 20140515
  Serious: Yes (Death, Other)
  Sender: FDA-Public Use
  Company Number: IT-CELGENEUS-083-C5013-11070031

PATIENT
  Age: 63 Year
  Sex: Male
  Weight: 88.6 kg

DRUGS (6)
  1. CC-5013 [Suspect]
     Indication: NON-HODGKIN^S LYMPHOMA
     Dosage: 25 MILLIGRAM
     Route: 048
     Dates: start: 20110110, end: 20110221
  2. ALLOPURINOL [Concomitant]
     Indication: TUMOUR LYSIS SYNDROME
     Dosage: 150 MILLIGRAM
     Route: 065
     Dates: start: 20110207, end: 20110220
  3. PIDOLATE MAGNESIUM [Concomitant]
     Indication: MUSCLE SPASMS
     Dosage: 4.5 MILLIGRAM
     Route: 065
     Dates: start: 20110207, end: 20110306
  4. LEVOXACIN [Concomitant]
     Indication: COUGH
     Dosage: 500 MILLIGRAM
     Route: 065
     Dates: start: 20110203, end: 20110206
  5. DARBEPOETIN [Concomitant]
     Indication: ANAEMIA
     Route: 065
     Dates: start: 20110228, end: 20110420
  6. TRANEXAMIC ACID [Concomitant]
     Indication: THROMBOCYTOPENIA
     Dosage: 3 GRAM
     Route: 065
     Dates: start: 20110314, end: 20110517

REACTIONS (2)
  - Myelodysplastic syndrome [Not Recovered/Not Resolved]
  - Pneumonia [Fatal]
